FAERS Safety Report 4837262-2 (Version None)
Quarter: 2005Q4

REPORT INFORMATION
  Report Type: 
  Country: None (occurrence: None)
  Receive Date: 20051122
  Receipt Date: 20051108
  Transmission Date: 20060501
  Serious: Yes (Hospitalization)
  Sender: FDA-Public Use
  Company Number: 2005-02357

PATIENT
  Age: 65 Year
  Sex: Male
  Weight: 85.3 kg

DRUGS (8)
  1. VELCADE [Suspect]
     Indication: MULTIPLE MYELOMA
     Dates: start: 20050412, end: 20050524
  2. THALIDOMIDE [Concomitant]
  3. DEXAMETHASONE [Concomitant]
  4. DOXIL [Concomitant]
  5. COUMADIN [Concomitant]
  6. PEPCID [Concomitant]
  7. HYDROCHLOROTHIAZIDE [Concomitant]
  8. VALTREX [Concomitant]

REACTIONS (10)
  - BLOOD CREATININE INCREASED [None]
  - DISEASE PROGRESSION [None]
  - DRUG HYPERSENSITIVITY [None]
  - FATIGUE [None]
  - HAEMATURIA [None]
  - HERPES SIMPLEX [None]
  - HYPERVISCOSITY SYNDROME [None]
  - INTERNATIONAL NORMALISED RATIO INCREASED [None]
  - LEUKOPENIA [None]
  - RENAL FAILURE [None]
